FAERS Safety Report 9733140 (Version 2)
Quarter: 2013Q4

REPORT INFORMATION
  Report Type: Spontaneous
  Country: US (occurrence: US)
  Receive Date: 20131205
  Receipt Date: 20131226
  Transmission Date: 20140711
  Serious: Yes (Hospitalization)
  Sender: FDA-Public Use
  Company Number: US-BAXTER-2013BAX048311

PATIENT
  Age: 71 Year
  Sex: Male

DRUGS (4)
  1. DIANEAL LOW CALCIUM [Suspect]
     Indication: PERITONEAL DIALYSIS
     Route: 033
     Dates: start: 201302, end: 20131129
  2. DIANEAL LOW CALCIUM [Suspect]
     Indication: PERITONEAL DIALYSIS
     Route: 033
     Dates: start: 201302, end: 20131129
  3. DIANEAL LOW CALCIUM [Suspect]
     Indication: PERITONEAL DIALYSIS
     Route: 033
     Dates: start: 201302, end: 20131129
  4. COUMADIN [Suspect]
     Indication: ATRIAL FIBRILLATION
     Route: 065
     Dates: start: 201309

REACTIONS (2)
  - Bloody peritoneal effluent [Recovering/Resolving]
  - Peritoneal haemorrhage [Recovering/Resolving]
